FAERS Safety Report 6271727-4 (Version None)
Quarter: 2009Q3

REPORT INFORMATION
  Report Type: 
  Country: None (occurrence: None)
  Receive Date: 20090716
  Receipt Date: 20090716
  Transmission Date: 20100115
  Serious: Yes (Life-Threatening, Disabling)
  Sender: FDA-Public Use
  Company Number: None

PATIENT
  Age: 56 Year
  Sex: Female
  Weight: 75.7507 kg

DRUGS (1)
  1. LEVAQUIN [Suspect]
     Indication: PYELONEPHRITIS
     Dosage: 1 TABLET ONCE DAILY ORALLY
     Route: 048
     Dates: start: 20090625, end: 20090628

REACTIONS (3)
  - BACK PAIN [None]
  - CRYING [None]
  - INSOMNIA [None]
